FAERS Safety Report 6877511-2 (Version None)
Quarter: 2010Q3

REPORT INFORMATION
  Report Type: 
  Country: None (occurrence: None)
  Receive Date: 20100727
  Receipt Date: 20091216
  Transmission Date: 20110219
  Serious: No
  Sender: FDA-Public Use
  Company Number: US-ABBOTT-09P-163-0615612-00

PATIENT
  Sex: Female
  Weight: 45.4 kg

DRUGS (3)
  1. SYNTHROID [Suspect]
     Indication: HYPOTHYROIDISM
     Route: 048
     Dates: start: 20070601
  2. NATURAL HORMONES [Concomitant]
     Indication: HYSTERECTOMY
     Route: 060
     Dates: start: 19820101
  3. VITAMIN TAB [Concomitant]
     Indication: VITAMIN SUPPLEMENTATION
     Route: 060

REACTIONS (1)
  - THYROID FUNCTION TEST ABNORMAL [None]
